FAERS Safety Report 5403112-9 (Version None)
Quarter: 2007Q3

REPORT INFORMATION
  Report Type: 
  Country: None (occurrence: None)
  Receive Date: 20070801
  Receipt Date: 20070720
  Transmission Date: 20080115
  Serious: Yes (Hospitalization, Other)
  Sender: FDA-Public Use
  Company Number: FR-PFIZER INC-2007027111

PATIENT
  Age: 83 Year
  Sex: Female

DRUGS (9)
  1. ATORVASTATIN CALCIUM [Suspect]
     Route: 048
     Dates: start: 20060615, end: 20070204
  2. ACARBOSE [Suspect]
     Route: 048
     Dates: start: 20060615, end: 20070204
  3. DI-ANTALVIC [Suspect]
     Route: 048
     Dates: start: 20060615, end: 20070204
  4. MOGADON [Concomitant]
     Route: 048
     Dates: start: 20060615, end: 20070204
  5. FUROSEMIDE [Concomitant]
  6. PREVISCAN [Concomitant]
     Indication: DEEP VEIN THROMBOSIS
  7. FLECAINIDE ACETATE [Concomitant]
  8. ALLOPURINOL [Concomitant]
  9. TRIATEC [Concomitant]

REACTIONS (4)
  - ALANINE AMINOTRANSFERASE INCREASED [None]
  - ASPARTATE AMINOTRANSFERASE INCREASED [None]
  - CYTOLYTIC HEPATITIS [None]
  - LUNG DISORDER [None]
